FAERS Safety Report 7338822-X (Version None)
Quarter: 2011Q1

REPORT INFORMATION
  Report Type: 
  Country: None (occurrence: None)
  Receive Date: 20110308
  Receipt Date: 20110301
  Transmission Date: 20110831
  Serious: Yes (Hospitalization, Other)
  Sender: FDA-Public Use
  Company Number: US-MERCK-1008USA03501

PATIENT
  Age: 54 Year
  Sex: Female

DRUGS (2)
  1. LEVOTHROID [Concomitant]
     Indication: THYROID DISORDER
     Route: 065
     Dates: start: 19800101
  2. FOSAMAX [Suspect]
     Indication: OSTEOPOROSIS
     Route: 048
     Dates: start: 20020101, end: 20060511

REACTIONS (11)
  - BREAST DISORDER [None]
  - DENTAL CARIES [None]
  - ORAL INFECTION [None]
  - HYPERTENSION [None]
  - IMPAIRED HEALING [None]
  - VASCULAR PSEUDOANEURYSM [None]
  - GINGIVAL DISORDER [None]
  - OSTEONECROSIS OF JAW [None]
  - PAIN [None]
  - THYROID CANCER [None]
  - TOOTH EXTRACTION [None]
